FAERS Safety Report 10349648 (Version 1)
Quarter: 2014Q3

REPORT INFORMATION
  Report Type: Spontaneous
  Country: JP (occurrence: None)
  Receive Date: 20140728
  Receipt Date: 20140728
  Transmission Date: 20150326
  Serious: Yes (Other)
  Sender: FDA-Public Use
  Company Number: FK201402827

PATIENT
  Sex: Female

DRUGS (2)
  1. HEPARIN SODIUM (MANUFACTURER UNKNOWN (HEPARIN SODIUM) (HEPARIN SODIUM) [Suspect]
     Active Substance: HEPARIN SODIUM
     Indication: CATHETER MANAGEMENT
     Dosage: OTHER 1U/ML INTRAVENOUS
     Route: 042
  2. INDOMETHACIN (MANUFACTURER UNKNOWN) (INDOMETHACIN FOR INJECTION) (INDOMETHACIN FOR INJECTION) [Concomitant]

REACTIONS (1)
  - Hyperkalaemia [None]
